FAERS Safety Report 14077258 (Version 1)
Quarter: 2017Q4

REPORT INFORMATION
  Report Type: Spontaneous
  Country: US (occurrence: US)
  Receive Date: 20171012
  Receipt Date: 20171012
  Transmission Date: 20180321
  Serious: No
  Sender: FDA-Public Use
  Company Number: US-LUPIN PHARMACEUTICALS INC.-2017-03609

PATIENT
  Age: 70 Year
  Sex: Female
  Weight: 102.49 kg

DRUGS (1)
  1. CEPHALEXIN CAPSULES USP, 250 MG [Suspect]
     Active Substance: CEPHALEXIN
     Indication: CELLULITIS
     Dosage: 250 MG, QID (EVERY 6 HOURS)
     Route: 048
     Dates: start: 20170623

REACTIONS (3)
  - Paraesthesia [Not Recovered/Not Resolved]
  - Product odour abnormal [Unknown]
  - Paraesthesia oral [None]

NARRATIVE: CASE EVENT DATE: 20170626
